FAERS Safety Report 7337812-0 (Version None)
Quarter: 2011Q1

REPORT INFORMATION
  Report Type: 
  Country: None (occurrence: None)
  Receive Date: 20110308
  Receipt Date: 20110302
  Transmission Date: 20110831
  Serious: Yes (Hospitalization)
  Sender: FDA-Public Use
  Company Number: KR-ROCHE-749400

PATIENT
  Sex: Female

DRUGS (20)
  1. TOCILIZUMAB [Suspect]
     Indication: RHEUMATOID ARTHRITIS
     Route: 042
     Dates: start: 20100618, end: 20101203
  2. CALCIUM LACTATE [Concomitant]
     Route: 048
     Dates: start: 20061211, end: 20110206
  3. ERGOCALCIFEROL [Concomitant]
     Route: 048
     Dates: start: 20061211, end: 20110206
  4. CHLORPHENIRAMINE MALEATE [Concomitant]
     Route: 030
     Dates: start: 20091231, end: 20101203
  5. METHYLPREDNISOLONE [Concomitant]
     Route: 048
     Dates: start: 20050124, end: 20100811
  6. METHYLPREDNISOLONE [Concomitant]
     Route: 048
     Dates: start: 20100812, end: 20110206
  7. TALNIFLUMATE [Concomitant]
     Route: 048
     Dates: start: 20080122, end: 20110206
  8. PRECIPITATED CALCIUM CARBONATE [Concomitant]
     Route: 048
     Dates: start: 20061211, end: 20110206
  9. METHOTREXATE [Concomitant]
     Route: 048
     Dates: start: 20100803, end: 20100909
  10. RANITIDINE HYDROCHLORIDE [Concomitant]
     Route: 048
     Dates: start: 20090718, end: 20110206
  11. AMLODIPINE BESILATE [Concomitant]
     Route: 048
     Dates: start: 20090921
  12. PRAVASTATIN SODIUM [Concomitant]
     Route: 048
     Dates: start: 20100326, end: 20110206
  13. EZETIMIBE [Concomitant]
     Route: 048
     Dates: start: 20100618, end: 20100715
  14. BLINDED TOCILIZUMAB [Concomitant]
     Route: 042
     Dates: start: 20091231, end: 20100520
  15. METHOTREXATE [Concomitant]
     Route: 048
     Dates: start: 20100909, end: 20101214
  16. METHOTREXATE [Concomitant]
     Route: 048
     Dates: start: 20090406, end: 20100718
  17. FOLIC ACID [Concomitant]
     Route: 048
     Dates: start: 20030630
  18. CALCIUM GLUCONATE [Concomitant]
     Route: 048
     Dates: start: 20061211, end: 20110206
  19. ARTEMISIA ASIATICA [Concomitant]
     Dosage: DRUG:ARTEMISIA ASIATICA EXT.
     Route: 048
     Dates: start: 20090622, end: 20110206
  20. HYDROXYCHLOROQUINE [Concomitant]
     Route: 048
     Dates: start: 20090902, end: 20101215

REACTIONS (1)
  - LUNG ADENOCARCINOMA [None]
